FAERS Safety Report 9383800 (Version 2)
Quarter: 2013Q3

REPORT INFORMATION
  Report Type: Spontaneous
  Country: FR (occurrence: FR)
  Receive Date: 20130704
  Receipt Date: 20130722
  Transmission Date: 20140515
  Serious: Yes (Death)
  Sender: FDA-Public Use
  Company Number: FR-BRISTOL-MYERS SQUIBB COMPANY-19072057

PATIENT
  Age: 81 Year
  Sex: Male

DRUGS (13)
  1. IRBESARTAN [Suspect]
     Route: 048
  2. PARACETAMOL [Suspect]
     Route: 048
  3. DICLOFENAC SODIUM [Suspect]
     Route: 003
  4. FUROSEMIDE [Suspect]
     Indication: CARDIAC FAILURE
     Dosage: LAST DOSE ON 08JUN13,THERAPY DURATION:24DAYS
     Route: 048
     Dates: start: 20130516, end: 20130608
  5. NOVOMIX [Suspect]
     Indication: DIABETES MELLITUS
     Route: 058
  6. ATORVASTATIN [Suspect]
     Route: 048
  7. DIFFU-K [Suspect]
     Route: 048
  8. SPIRONOLACTONE [Suspect]
     Route: 048
  9. OMEPRAZOLE [Suspect]
     Route: 048
  10. PAROXETINE [Suspect]
     Route: 048
  11. ALFUZOSIN [Suspect]
     Route: 048
  12. ZOLPIDEM [Suspect]
     Route: 048
  13. ALLOPURINOL [Suspect]
     Dosage: 1DF:1TAB
     Route: 048

REACTIONS (2)
  - Acute pulmonary oedema [Fatal]
  - Cardiac failure [Fatal]
